FAERS Safety Report 8537467 (Version 3)
Quarter: 2013Q4

REPORT INFORMATION
  Report Type: Spontaneous
  Country: US (occurrence: US)
  Receive Date: 20120430
  Receipt Date: 20131108
  Transmission Date: 20140711
  Serious: Yes (Other)
  Sender: FDA-Public Use
  Company Number: US-009507513-1204USA03609

PATIENT
  Age: 51 Year
  Sex: Female

DRUGS (6)
  1. ZOCOR [Suspect]
     Indication: BLOOD CHOLESTEROL INCREASED
     Route: 048
     Dates: end: 201111
  2. AMPYRA [Suspect]
     Dosage: UNK MG, UNK
     Route: 048
     Dates: end: 201111
  3. REBIF [Suspect]
     Indication: MULTIPLE SCLEROSIS
     Dates: start: 20110120
  4. GABAPENTIN [Suspect]
     Dosage: 6 IN ONE DAY, 6 DF QD
     Dates: end: 201111
  5. BUPROPION HYDROCHLORIDE [Suspect]
     Indication: DEPRESSION
     Dosage: UNK UNK, QD
     Dates: end: 201111
  6. DIAZEPAM [Suspect]
     Indication: MUSCLE SPASMS
     Dosage: UNK
     Dates: end: 201111

REACTIONS (7)
  - Suicidal ideation [Recovered/Resolved]
  - Convulsion [Recovered/Resolved]
  - Motor dysfunction [Unknown]
  - Mental disorder [Unknown]
  - Eye movement disorder [Unknown]
  - Urinary incontinence [Unknown]
  - Feeling abnormal [Unknown]
